FAERS Safety Report 6656123-X (Version None)
Quarter: 2010Q1

REPORT INFORMATION
  Report Type: 
  Country: None (occurrence: None)
  Receive Date: 20100329
  Receipt Date: 20100322
  Transmission Date: 20100710
  Serious: Yes (Other)
  Sender: FDA-Public Use
  Company Number: B0643377A

PATIENT
  Age: 86 Year
  Sex: Female

DRUGS (1)
  1. AUGMENTIN '125' [Suspect]
     Indication: CELLULITIS
     Route: 042
     Dates: start: 20090727, end: 20090727

REACTIONS (1)
  - BRONCHOSPASM [None]
